FAERS Safety Report 5621663-9 (Version None)
Quarter: 2008Q1

REPORT INFORMATION
  Report Type: 
  Country: None (occurrence: None)
  Receive Date: 20080131
  Receipt Date: 20080122
  Transmission Date: 20080703
  Serious: Yes (Hospitalization, Disabling)
  Sender: FDA-Public Use
  Company Number: WAES 0711USA02043

PATIENT
  Age: 56 Year
  Sex: Male
  Weight: 68.0396 kg

DRUGS (22)
  1. VORINOSTAT [Suspect]
     Indication: NON-SMALL CELL LUNG CANCER
     Dosage: 200 MG/BID/PO
     Route: 048
     Dates: start: 20070710, end: 20071025
  2. ERLOTINIB HYDROCHLORIDE [Suspect]
     Indication: NON-SMALL CELL LUNG CANCER
     Dosage: PO
     Route: 048
     Dates: start: 20070710, end: 20071030
  3. ATIVAN [Suspect]
     Indication: ANXIETY
     Dosage: 1 MG/TID
     Dates: start: 20071031, end: 20071102
  4. ALTACE [Concomitant]
  5. CENTRUM SILVER [Concomitant]
  6. EXCEDRIN (ACETAMINOPHEN (+) CAFFEINE) [Concomitant]
  7. LOMOTIL [Concomitant]
  8. SOMA [Concomitant]
  9. ZYRTEC-D [Concomitant]
  10. ACETAMINOPHEN AND  HYDROCODONE [Concomitant]
  11. ASCORBIC ACID [Concomitant]
  12. CARISOPRODOL [Concomitant]
  13. CLINDAMYCIN HCL [Concomitant]
  14. DOXYCYCLINE [Concomitant]
  15. FOLIC ACID [Concomitant]
  16. INSULIN [Concomitant]
  17. INSULIN, ISOPHANE [Concomitant]
  18. PRAVASTATIN SODIUM [Concomitant]
  19. PROCHLORPERAZINE MALEATE [Concomitant]
  20. TEA [Concomitant]
  21. TURMERIC [Concomitant]
  22. VITAMIN B (UNSPECIFIED) [Concomitant]

REACTIONS (16)
  - ASTHENIA [None]
  - DIABETES MELLITUS INADEQUATE CONTROL [None]
  - DISORIENTATION [None]
  - DYSURIA [None]
  - FALL [None]
  - LOSS OF CONSCIOUSNESS [None]
  - MALIGNANT NEOPLASM PROGRESSION [None]
  - MUSCLE SPASMS [None]
  - MUSCULAR WEAKNESS [None]
  - NON-SMALL CELL LUNG CANCER [None]
  - PAIN [None]
  - SYNCOPE [None]
  - TREMOR [None]
  - URINARY HESITATION [None]
  - URINARY RETENTION [None]
  - URINARY TRACT DISORDER [None]
